FAERS Safety Report 5372858-3 (Version None)
Quarter: 2007Q2

REPORT INFORMATION
  Report Type: 
  Country: None (occurrence: None)
  Receive Date: 20070621
  Receipt Date: 20070417
  Transmission Date: 20071010
  Serious: No
  Sender: FDA-Public Use
  Company Number: US-CVT-070089

PATIENT
  Age: 72 Year
  Sex: Female
  Weight: 92.5 kg

DRUGS (8)
  1. RANEXA [Suspect]
     Indication: ANGINA PECTORIS
     Dosage: 500 MG,BID,ORAL
     Route: 048
     Dates: start: 20061113, end: 20070319
  2. LOPRESSOR [Concomitant]
  3. SIMVASTATIN [Concomitant]
  4. ASPIRIN [Concomitant]
  5. LISINOPRIL/00894001/ (LISINOPRIL) [Concomitant]
  6. LEVOTHROID [Concomitant]
  7. PLAVIX [Concomitant]
  8. ZETIA [Concomitant]

REACTIONS (4)
  - CHEST PAIN [None]
  - ELECTROCARDIOGRAM T WAVE ABNORMAL [None]
  - OEDEMA PERIPHERAL [None]
  - PALPITATIONS [None]
